FAERS Safety Report 19883643 (Version 1)
Quarter: 2021Q3

REPORT INFORMATION
  Report Type: Spontaneous
  Country: US (occurrence: US)
  Receive Date: 20210927
  Receipt Date: 20210927
  Transmission Date: 20211014
  Serious: No
  Sender: FDA-Public Use
  Company Number: US-BLUEPRINT MEDICINES CORPORATION-SP-US-2021-001562

PATIENT
  Sex: Female

DRUGS (1)
  1. AYVAKIT [Suspect]
     Active Substance: AVAPRITINIB
     Indication: MASTOCYTOSIS
     Route: 048
     Dates: start: 20210728

REACTIONS (3)
  - Erythema [Unknown]
  - Sunburn [Unknown]
  - Temperature intolerance [Unknown]
